FAERS Safety Report 10524079 (Version 1)
Quarter: 2014Q4

REPORT INFORMATION
  Report Type: Spontaneous
  Country: US (occurrence: None)
  Receive Date: 20141015
  Receipt Date: 20141015
  Transmission Date: 20150528
  Serious: No
  Sender: FDA-Public Use
  Company Number: None

PATIENT
  Age: 40 Year
  Sex: Female
  Weight: 77.11 kg

DRUGS (1)
  1. LYRICA [Suspect]
     Active Substance: PREGABALIN
     Indication: POST-TRAUMATIC STRESS DISORDER
     Dosage: 1 PILL MORNING, 1 IN EVERYTHING
     Route: 048
     Dates: start: 20140930, end: 20141011

REACTIONS (1)
  - Weight increased [None]

NARRATIVE: CASE EVENT DATE: 20141010
